FAERS Safety Report 8621851-3 (Version None)
Quarter: 2012Q3

REPORT INFORMATION
  Report Type: 
  Country: None (occurrence: None)
  Receive Date: 20120822
  Receipt Date: 20120822
  Transmission Date: 20120928
  Serious: No
  Sender: FDA-Public Use
  Company Number: None

PATIENT
  Sex: Female
  Weight: 51.2565 kg

DRUGS (1)
  1. FENTANYL CITRATE [Suspect]
     Indication: CERVICAL SPINAL STENOSIS
     Dosage: ONE EVERY 3 DAYS EVERY 72 HR
     Dates: start: 20120114, end: 20120613

REACTIONS (4)
  - BLOOD PRESSURE DECREASED [None]
  - EYE INFECTION [None]
  - WEIGHT DECREASED [None]
  - ASTHENIA [None]
